FAERS Safety Report 9719229 (Version 1)
Quarter: 2013Q4

REPORT INFORMATION
  Report Type: Spontaneous
  Country: US (occurrence: US)
  Receive Date: 20131127
  Receipt Date: 20131127
  Transmission Date: 20140711
  Serious: Yes (Hospitalization)
  Sender: FDA-Public Use
  Company Number: PHEH2013US024632

PATIENT
  Age: 68 Year
  Sex: Male

DRUGS (4)
  1. GLEEVEC [Suspect]
     Indication: GASTROINTESTINAL STROMAL TUMOUR
     Dosage: 200 MG, ONCE DAILY
     Route: 048
  2. GLEEVEC [Suspect]
     Dosage: 800 MG
     Route: 048
  3. GLEEVEC [Suspect]
     Dosage: 200 MG
     Route: 048
  4. SUTENT [Suspect]
     Dosage: UNK UKN, UNK

REACTIONS (4)
  - Haemangioma [Unknown]
  - Haemorrhage [Unknown]
  - Drug intolerance [Unknown]
  - Rash erythematous [Unknown]
